FAERS Safety Report 25223131 (Version 2)
Quarter: 2025Q2

REPORT INFORMATION
  Report Type: Spontaneous
  Country: US (occurrence: US)
  Receive Date: 20250422
  Receipt Date: 20250528
  Transmission Date: 20250716
  Serious: Yes (Other)
  Sender: AUROBINDO
  Company Number: US-AUROBINDO-AUR-APL-2025-019636

PATIENT
  Age: 88 Year
  Sex: Male
  Weight: 68.03 kg

DRUGS (2)
  1. CLOPIDOGREL [Suspect]
     Active Substance: CLOPIDOGREL BISULFATE
     Indication: Cerebrovascular accident
     Route: 048
  2. AMLODIPINE BESYLATE [Concomitant]
     Active Substance: AMLODIPINE BESYLATE
     Indication: Product used for unknown indication
     Route: 065

REACTIONS (5)
  - Foreign body in throat [Unknown]
  - Throat irritation [Unknown]
  - Product use complaint [Unknown]
  - Product solubility abnormal [Unknown]
  - Product coating issue [Unknown]
